FAERS Safety Report 19880711 (Version 1)
Quarter: 2021Q3

REPORT INFORMATION
  Report Type: Report from Study
  Country: DE (occurrence: DE)
  Receive Date: 20210924
  Receipt Date: 20210924
  Transmission Date: 20211014
  Serious: Yes (Other)
  Sender: FDA-Public Use
  Company Number: DE-PFIZER INC-202101193169

PATIENT
  Sex: Male
  Weight: 73 kg

DRUGS (3)
  1. MACITENTAN [Suspect]
     Active Substance: MACITENTAN
     Indication: PULMONARY ARTERIAL HYPERTENSION
     Dosage: 10 MG, 1X/DAY
     Route: 048
     Dates: start: 20210421, end: 20210530
  2. REVATIO [Suspect]
     Active Substance: SILDENAFIL CITRATE
     Indication: PULMONARY HYPERTENSION
     Dosage: UNK
     Route: 048
     Dates: start: 20210726
  3. REVATIO [Suspect]
     Active Substance: SILDENAFIL CITRATE
     Dosage: UNK
     Route: 048
     Dates: start: 200904, end: 20210523

REACTIONS (3)
  - Gastrooesophageal reflux disease [Recovered/Resolved]
  - Renal impairment [Not Recovered/Not Resolved]
  - Diarrhoea [Recovered/Resolved]

NARRATIVE: CASE EVENT DATE: 202104
